FAERS Safety Report 5131823-1 (Version None)
Quarter: 2006Q4

REPORT INFORMATION
  Report Type: 
  Country: None (occurrence: None)
  Receive Date: 20061016
  Receipt Date: 20061004
  Transmission Date: 20070319
  Serious: Yes (Disabling, Other)
  Sender: FDA-Public Use
  Company Number: 2005161988

PATIENT
  Age: 72 Year
  Sex: Female

DRUGS (4)
  1. LIPITOR [Suspect]
     Indication: DYSLIPIDAEMIA
     Dosage: 10 MCG (10 MG, FREQUENCY: 1X/DAY INTERVAL: EVERYDAY), ORAL
     Route: 048
     Dates: start: 20050101
  2. CELEBREX [Concomitant]
  3. ALL OTHER THERAPEUTIC PRODUCTS [Concomitant]
  4. ENALAPRIL MALEATE [Concomitant]

REACTIONS (3)
  - CONDITION AGGRAVATED [None]
  - GAIT DISTURBANCE [None]
  - MUSCULOSKELETAL PAIN [None]
